FAERS Safety Report 5115669-6 (Version None)
Quarter: 2006Q3

REPORT INFORMATION
  Report Type: 
  Country: None (occurrence: None)
  Receive Date: 20060926
  Receipt Date: 20060926
  Transmission Date: 20061208
  Serious: Yes (Other)
  Sender: FDA-Public Use
  Company Number: None

PATIENT
  Age: 53 Year
  Sex: Male
  Weight: 78 kg

DRUGS (7)
  1. CLOPIDOGREL [Suspect]
     Indication: ISCHAEMIC HEART DISEASE PROPHYLAXIS
     Dosage: 1 DAILY PO
     Route: 048
     Dates: start: 20060909, end: 20060915
  2. ASPIRIN [Concomitant]
  3. METOPROLOL TARTRATE [Concomitant]
  4. BUPROPION HCL [Concomitant]
  5. ALPRAZOLAM [Concomitant]
  6. FINASTERIDE [Concomitant]
  7. SIMVASTATIN [Concomitant]

REACTIONS (1)
  - RASH GENERALISED [None]
